FAERS Safety Report 23335088 (Version 1)
Quarter: 2023Q4

REPORT INFORMATION
  Report Type: Report from Study
  Country: CA (occurrence: CA)
  Receive Date: 20231225
  Receipt Date: 20231225
  Transmission Date: 20240110
  Serious: Yes (Hospitalization, Other)
  Sender: FDA-Public Use
  Company Number: CA-ABBVIE-5552587

PATIENT
  Sex: Male

DRUGS (1)
  1. SKYRIZI [Suspect]
     Active Substance: RISANKIZUMAB-RZAA
     Indication: Psoriasis
     Route: 058
     Dates: start: 20220809

REACTIONS (6)
  - Bone marrow disorder [Unknown]
  - Haemoglobin abnormal [Unknown]
  - Spondylitis [Unknown]
  - Fatigue [Unknown]
  - Pain [Unknown]
  - Visual impairment [Unknown]
